FAERS Safety Report 6691371 (Version 2)
Quarter: 2013Q2

REPORT INFORMATION
  Report Type: Spontaneous
  Country: US (occurrence: None)
  Receive Date: 20080311
  Receipt Date: 20120504
  Transmission Date: 20140414
  Serious: Yes (Other)
  Sender: FDA-Public Use
  Company Number: PHEH2007US15732

PATIENT
  Age: 55 Year
  Sex: Female
  Weight: 71.2 kg

DRUGS (4)
  1. TRILEPTAL [Suspect]
     Indication: CONVULSION
     Dosage: 900 MG, QD, ORAL
     Route: 048
     Dates: start: 200311
  2. TRILEPTAL [Suspect]
     Indication: CONVULSION
     Dosage: 900 MG, QD, ORAL
     Route: 048
     Dates: start: 200311
  3. ACETAMINOPHEN\DIPHENHYDRAMINE [Concomitant]
  4. CLONIDINE TRANSDERMAL SYSTEM [Concomitant]

REACTIONS (1)
  - CATARACT [None]
